FAERS Safety Report 8889426 (Version 1)
Quarter: 2012Q4

REPORT INFORMATION
  Report Type: Spontaneous
  Country: US (occurrence: None)
  Receive Date: 20121102
  Receipt Date: 20121102
  Transmission Date: 20130627
  Serious: No
  Sender: FDA-Public Use
  Company Number: None

PATIENT
  Age: 52 Year
  Sex: Female
  Weight: 74.39 kg

DRUGS (1)
  1. REMICADE [Suspect]
     Indication: CROHN^S
     Route: 041
     Dates: start: 20120827, end: 20120827

REACTIONS (5)
  - Pain [None]
  - Hypersensitivity [None]
  - Rash [None]
  - Rash [None]
  - Rash [None]
